FAERS Safety Report 15273785 (Version 2)
Quarter: 2018Q3

REPORT INFORMATION
  Report Type: Spontaneous
  Country: US (occurrence: US)
  Receive Date: 20180813
  Receipt Date: 20180926
  Transmission Date: 20181010
  Serious: Yes (Hospitalization, Other)
  Sender: FDA-Public Use
  Company Number: US-GLAXOSMITHKLINE-US2018141980

PATIENT
  Age: 77 Year
  Sex: Female

DRUGS (1)
  1. ADVAIR DISKUS [Suspect]
     Active Substance: FLUTICASONE PROPIONATE\SALMETEROL XINAFOATE
     Indication: ASTHMA
     Dosage: 1 PUFF(S), PRN
     Route: 055
     Dates: start: 2012

REACTIONS (9)
  - Pneumonia [Recovered/Resolved]
  - Rehabilitation therapy [Unknown]
  - Chronic obstructive pulmonary disease [Unknown]
  - Intentional product use issue [Unknown]
  - Infection [Recovered/Resolved]
  - Pulmonary oedema [Recovered/Resolved]
  - Thrombosis [Recovered/Resolved]
  - Intensive care [Unknown]
  - Underdose [Unknown]

NARRATIVE: CASE EVENT DATE: 20180423
